FAERS Safety Report 4467950-1 (Version None)
Quarter: 2004Q4

REPORT INFORMATION
  Report Type: 
  Country: None (occurrence: None)
  Receive Date: 20041004
  Receipt Date: 20040922
  Transmission Date: 20050328
  Serious: Yes (Disabling, Other)
  Sender: FDA-Public Use
  Company Number: 2004UW17956

PATIENT
  Sex: 0

DRUGS (2)
  1. SEROQUEL [Suspect]
  2. AXID [Suspect]
     Dates: start: 20040801

REACTIONS (3)
  - AGGRESSION [None]
  - AGITATION [None]
  - MEDICATION ERROR [None]
